FAERS Safety Report 6873603-2 (Version None)
Quarter: 2010Q3

REPORT INFORMATION
  Report Type: 
  Country: None (occurrence: None)
  Receive Date: 20100723
  Receipt Date: 20091015
  Transmission Date: 20110219
  Serious: Yes (Death, Other)
  Sender: FDA-Public Use
  Company Number: US-PFIZER INC-2009157113

PATIENT
  Sex: Female

DRUGS (13)
  1. CHANTIX [Suspect]
     Indication: SMOKING CESSATION THERAPY
     Dosage: 1 MG, 2X/DAY
     Route: 048
     Dates: start: 20070222, end: 20070403
  2. CYMBALTA [Concomitant]
     Dosage: 90 MG, 1X/DAY
     Route: 048
     Dates: start: 20060215
  3. TOPAMAX [Concomitant]
     Dosage: 200 MG, 2X/DAY
     Route: 048
     Dates: start: 20060304
  4. KLONOPIN [Concomitant]
     Dosage: 0.5 MG, AS NEEDED
     Dates: start: 20060920
  5. MIRAPEX [Concomitant]
     Dosage: 0.25 MG, 1X/DAY
     Dates: start: 20061022
  6. VESICARE [Concomitant]
     Dosage: 5 MG, 1X/DAY
     Dates: start: 20061027
  7. LEXAPRO [Concomitant]
     Dosage: 40 MG, 1X/DAY
     Route: 048
  8. SEROQUEL [Concomitant]
     Dosage: 50 MG, 1X/DAY
     Dates: start: 20070206
  9. AZMACORT [Concomitant]
     Dosage: UNK
     Dates: start: 20060814
  10. MONTELUKAST [Concomitant]
     Dosage: 10 MG, 1X/DAY
     Dates: start: 20050812
  11. PRILOSEC [Concomitant]
     Dosage: 20 MG, 1X/DAY
     Dates: start: 20051023
  12. ALBUTEROL [Concomitant]
     Dosage: UNK
     Dates: start: 20051109
  13. CLARITIN [Concomitant]
     Dosage: 10 MG, 1X/DAY
     Dates: start: 20060104

REACTIONS (7)
  - AGGRESSION [None]
  - COMPLETED SUICIDE [None]
  - DEPRESSION [None]
  - FATIGUE [None]
  - GALLBLADDER PAIN [None]
  - MOOD SWINGS [None]
  - TINEA VERSICOLOUR [None]
